FAERS Safety Report 9747313 (Version 2)
Quarter: 2014Q1

REPORT INFORMATION
  Report Type: Spontaneous
  Country: AT (occurrence: AT)
  Receive Date: 20131212
  Receipt Date: 20140314
  Transmission Date: 20141002
  Serious: Yes (Death, Other)
  Sender: FDA-Public Use
  Company Number: AT-AMGEN-AUTSP2013086885

PATIENT
  Age: 66 Year
  Sex: Male

DRUGS (8)
  1. XGEVA [Suspect]
     Indication: METASTASES TO BONE
     Dosage: UNK
     Route: 065
     Dates: start: 201207
  2. XGEVA [Suspect]
     Indication: PROPHYLAXIS
  3. PANTOLOC                           /01263204/ [Concomitant]
     Dosage: 20 MG, UNK
  4. PREDNISOLON                        /00016201/ [Concomitant]
     Dosage: 5 MG, BID
  5. CAL-D-VITA [Concomitant]
  6. BICALUTAMID [Concomitant]
     Dosage: 50 MG, UNK
  7. RAMIPRIL [Concomitant]
  8. HYDAL [Concomitant]

REACTIONS (2)
  - Prostate cancer [Fatal]
  - Osteonecrosis of jaw [Unknown]
